FAERS Safety Report 4604907-1 (Version None)
Quarter: 2005Q1

REPORT INFORMATION
  Report Type: 
  Country: None (occurrence: None)
  Receive Date: 20050310
  Receipt Date: 20050310
  Transmission Date: 20050727
  Serious: Yes (Hospitalization)
  Sender: FDA-Public Use
  Company Number: None

PATIENT
  Age: 47 Year
  Sex: Male

DRUGS (8)
  1. TRAMADOL    50MG [Suspect]
     Indication: NECK PAIN
     Dosage: 100MG   ONCE   ORAL
     Route: 048
     Dates: start: 20041203, end: 20041203
  2. ASPIRIN [Concomitant]
  3. PLAVIX [Concomitant]
  4. ALTACE [Concomitant]
  5. TOPROL-XL [Concomitant]
  6. LIPITOR [Concomitant]
  7. VICODIN [Concomitant]
  8. TYLENOL W/ CODEINE [Concomitant]

REACTIONS (1)
  - CONVULSION [None]
